FAERS Safety Report 4893547-5 (Version None)
Quarter: 2006Q1

REPORT INFORMATION
  Report Type: 
  Country: None (occurrence: None)
  Receive Date: 20060124
  Receipt Date: 20060117
  Transmission Date: 20060701
  Serious: Yes (Hospitalization)
  Sender: FDA-Public Use
  Company Number: HQWYE211610FEB05

PATIENT
  Age: 62 Year
  Sex: Female

DRUGS (6)
  1. PANTOPRAZOLE SODIUM [Suspect]
     Indication: ABDOMINAL PAIN
     Dosage: 20 MG ^SOME TIME (S)^
     Route: 048
     Dates: start: 20050129
  2. PANTOPRAZOLE SODIUM [Suspect]
     Indication: GASTRIC ULCER
     Dosage: 20 MG ^SOME TIME (S)^
     Route: 048
     Dates: start: 20050129
  3. LIPITOR [Concomitant]
  4. VALIUM [Concomitant]
  5. TAGAMET [Concomitant]
  6. MYLANTA [Concomitant]

REACTIONS (6)
  - ABDOMINAL PAIN UPPER [None]
  - CONDITION AGGRAVATED [None]
  - DEFAECATION URGENCY [None]
  - DYSPEPSIA [None]
  - HEADACHE [None]
  - NAUSEA [None]
